FAERS Safety Report 4643013-7 (Version None)
Quarter: 2005Q2

REPORT INFORMATION
  Report Type: 
  Country: None (occurrence: None)
  Receive Date: 20050422
  Receipt Date: 20050415
  Transmission Date: 20051028
  Serious: Yes (Hospitalization)
  Sender: FDA-Public Use
  Company Number: US-2004-035284

PATIENT
  Age: 43 Year
  Sex: Female

DRUGS (1)
  1. BETASERON [Suspect]
     Indication: SECONDARY PROGRESSIVE MULTIPLE SCLEROSIS
     Dosage: 8MIU, EVERY 2D, SUBCUTANEOUS
     Route: 058
     Dates: start: 19981105

REACTIONS (3)
  - RENAL DISORDER [None]
  - THROMBOSIS [None]
  - UNEVALUABLE EVENT [None]
